FAERS Safety Report 7459372-6 (Version None)
Quarter: 2011Q2

REPORT INFORMATION
  Report Type: 
  Country: None (occurrence: None)
  Receive Date: 20110505
  Receipt Date: 20110428
  Transmission Date: 20111010
  Serious: No
  Sender: FDA-Public Use
  Company Number: US-PFIZER INC-2011092299

PATIENT
  Sex: Male
  Weight: 68.027 kg

DRUGS (4)
  1. DETROL LA [Suspect]
     Indication: URINARY TRACT DISORDER
     Dosage: UNK
     Route: 048
     Dates: start: 20110101, end: 20110101
  2. SIMVASTATIN [Concomitant]
     Indication: BLOOD CHOLESTEROL DECREASED
     Dosage: 20 MG, ALTERNATE DAY
  3. CENTRUM SILVER ULTRA MEN'S [Suspect]
     Indication: EYE DISORDER
     Dosage: UNK
     Dates: start: 20101001, end: 20110401
  4. VESICARE [Suspect]
     Indication: URINARY TRACT DISORDER
     Dosage: UNK
     Route: 048
     Dates: start: 20110101, end: 20110101

REACTIONS (2)
  - ADVERSE EVENT [None]
  - POLLAKIURIA [None]
